FAERS Safety Report 14850222 (Version 1)
Quarter: 2018Q2

REPORT INFORMATION
  Report Type: Spontaneous
  Country: US (occurrence: US)
  Receive Date: 20180505
  Receipt Date: 20180505
  Transmission Date: 20180711
  Serious: Yes (Hospitalization, Other)
  Sender: FDA-Public Use
  Company Number: US-BION-007135

PATIENT
  Age: 57 Year
  Sex: Male

DRUGS (3)
  1. ACETYLSALICYLIC ACID [Suspect]
     Active Substance: ASPIRIN
     Indication: PRODUCT USED FOR UNKNOWN INDICATION
  2. CLOPIDOGREL [Concomitant]
     Active Substance: CLOPIDOGREL BISULFATE
  3. DICLOFENAC UNKNOWN [Suspect]
     Active Substance: DICLOFENAC POTASSIUM
     Indication: PRODUCT USED FOR UNKNOWN INDICATION
     Dosage: 75 MG TWICE DAILY

REACTIONS (7)
  - Fibrosis [Unknown]
  - Asthenia [Unknown]
  - Occult blood positive [None]
  - Large intestinal stenosis [Recovering/Resolving]
  - Abdominal pain [Recovering/Resolving]
  - Haemoglobin decreased [None]
  - Eosinophilia [Unknown]
